FAERS Safety Report 23809742 (Version 1)
Quarter: 2024Q2

REPORT INFORMATION
  Report Type: Spontaneous
  Country: US (occurrence: US)
  Receive Date: 20240502
  Receipt Date: 20240502
  Transmission Date: 20240716
  Serious: No
  Sender: FDA-Public Use
  Company Number: US-UCBSA-2023024462

PATIENT
  Sex: Female
  Weight: 63.492 kg

DRUGS (10)
  1. CIMZIA [Suspect]
     Active Substance: CERTOLIZUMAB PEGOL
     Indication: Axial spondyloarthritis
     Dosage: 1 MILLILITER, EV 2 WEEKS(QOW)
     Route: 058
     Dates: start: 20230425
  2. CIMZIA [Suspect]
     Active Substance: CERTOLIZUMAB PEGOL
     Dosage: 200 MILLIGRAM, EV 2 WEEKS(QOW)
     Route: 058
     Dates: start: 20230411
  3. SILDENAFIL CITRATE [Concomitant]
     Active Substance: SILDENAFIL CITRATE
     Indication: Product used for unknown indication
     Dosage: 100 MILLIGRAM
  4. PAXLOVID [Concomitant]
     Active Substance: NIRMATRELVIR\RITONAVIR
     Indication: Product used for unknown indication
     Dosage: 300-100
  5. VALACYCLOVIR [Concomitant]
     Active Substance: VALACYCLOVIR HYDROCHLORIDE
     Indication: Product used for unknown indication
     Dosage: 1000 MILLIGRAM
  6. AMLODIPINE BESYLATE [Concomitant]
     Active Substance: AMLODIPINE BESYLATE
     Indication: Product used for unknown indication
     Dosage: 5 MILLIGRAM
  7. PROGESTERONE [Concomitant]
     Active Substance: PROGESTERONE
     Indication: Product used for unknown indication
     Dosage: 100 MILLIGRAM
  8. PROGESTERONE [Concomitant]
     Active Substance: PROGESTERONE
     Dosage: 200 MILLIGRAM
  9. ESTRADIOL [Concomitant]
     Active Substance: ESTRADIOL
     Indication: Product used for unknown indication
     Dosage: .037 MILLIGRAM, 2X/DAY (BID)
  10. TRAZODONE HYDROCHLORIDE [Concomitant]
     Active Substance: TRAZODONE HYDROCHLORIDE
     Indication: Product used for unknown indication
     Dosage: 100 MILLIGRAM

REACTIONS (5)
  - COVID-19 [Not Recovered/Not Resolved]
  - Oral herpes [Not Recovered/Not Resolved]
  - Skin discolouration [Not Recovered/Not Resolved]
  - Eye operation [Recovered/Resolved with Sequelae]
  - Palpitations [Unknown]

NARRATIVE: CASE EVENT DATE: 20230101
